FAERS Safety Report 9995546 (Version 4)
Quarter: 2014Q3

REPORT INFORMATION
  Report Type: Spontaneous
  Country: JP (occurrence: JP)
  Receive Date: 20140311
  Receipt Date: 20140718
  Transmission Date: 20150326
  Serious: Yes (Hospitalization)
  Sender: FDA-Public Use
  Company Number: JP-OTSUKA-JP-2014-12360

PATIENT
  Age: 67 Year
  Sex: Female
  Weight: 54 kg

DRUGS (22)
  1. ALDACTONE [Concomitant]
     Active Substance: SPIRONOLACTONE
     Dosage: 100 MG MILLIGRAM(S), DAILY DOSE
     Route: 048
     Dates: start: 20140227, end: 20140227
  2. ALDACTONE [Concomitant]
     Active Substance: SPIRONOLACTONE
     Dosage: 100 MG MILLIGRAM(S), DAILY DOSE
     Route: 048
  3. SAMSCA [Suspect]
     Active Substance: TOLVAPTAN
     Indication: ASCITES
     Dosage: 7.5 MG MILLIGRAM(S), DAILY DOSE
     Route: 048
     Dates: start: 20140226, end: 20140303
  4. ALDACTONE [Concomitant]
     Active Substance: SPIRONOLACTONE
     Dosage: 50 MG MILLIGRAM(S), DAILY DOSE
     Route: 048
     Dates: start: 20140225, end: 20140226
  5. AMINOLEBAN EN [Concomitant]
     Active Substance: UNSPECIFIED INGREDIENT
     Dosage: 50 G GRAM(S), DAILY DOSE
     Route: 048
     Dates: start: 20130118
  6. MONILAC [Concomitant]
     Active Substance: LACTULOSE
     Dosage: 30 ML MILLILITRE(S), DAILY DOSE
     Route: 048
     Dates: start: 20130605
  7. ALBUMIN [Concomitant]
     Active Substance: ALBUMIN (HUMAN)
     Dosage: UNK
     Route: 042
     Dates: start: 20140227, end: 20140303
  8. LIVACT [Concomitant]
     Dosage: 12.45 G GRAM(S), DAILY DOSE
     Route: 048
     Dates: start: 20090304
  9. PROMAC [Concomitant]
     Active Substance: NITROFURANTOIN
     Dosage: 150 MG MILLIGRAM(S), DAILY DOSE
     Route: 048
     Dates: start: 20130522
  10. MYSLEE [Concomitant]
     Active Substance: ZOLPIDEM TARTRATE
     Dosage: 5 MG MILLIGRAM(S), DAILY DOSE
     Route: 048
     Dates: start: 20140223
  11. FERROMIA [Concomitant]
     Active Substance: FERROUS CITRATE
     Dosage: 50 MG MILLIGRAM(S), DAILY DOSE
     Route: 048
     Dates: start: 20130718
  12. ALDACTONE [Concomitant]
     Active Substance: SPIRONOLACTONE
     Dosage: 100 MG MILLIGRAM(S), DAILY DOSE
     Route: 048
     Dates: start: 20060713, end: 20140219
  13. LASIX [Concomitant]
     Active Substance: FUROSEMIDE
     Dosage: 80 MG MILLIGRAM(S), DAILY DOSE
     Route: 048
     Dates: start: 20110330, end: 20140219
  14. LASIX [Concomitant]
     Active Substance: FUROSEMIDE
     Dosage: 40 MG MILLIGRAM(S), DAILY DOSE
     Route: 048
     Dates: start: 20140225, end: 20140226
  15. LASIX [Concomitant]
     Active Substance: FUROSEMIDE
     Dosage: 80 MG MILLIGRAM(S), DAILY DOSE
     Route: 048
  16. MIYA-BM [Concomitant]
     Active Substance: CLOSTRIDIUM BUTYRICUM SPORES STRAIN M-55
     Dosage: 60 MG MILLIGRAM(S), DAILY DOSE
     Route: 048
     Dates: start: 20130306
  17. SAMSCA [Suspect]
     Active Substance: TOLVAPTAN
     Indication: PLEURAL EFFUSION
     Dosage: 3.75 MG MILLIGRAM(S), QAM
     Route: 048
     Dates: start: 20140225, end: 20140225
  18. ALDACTONE [Concomitant]
     Active Substance: SPIRONOLACTONE
     Dosage: 80 MG MILLIGRAM(S), DAILY DOSE
     Route: 048
     Dates: start: 20140228, end: 20140228
  19. LASIX [Concomitant]
     Active Substance: FUROSEMIDE
     Dosage: 80 MG MILLIGRAM(S), DAILY DOSE
     Route: 048
     Dates: start: 20140227, end: 20140301
  20. PARIET [Concomitant]
     Active Substance: RABEPRAZOLE SODIUM
     Dosage: 10 MG MILLIGRAM(S), DAILY DOSE
     Route: 048
     Dates: start: 20120116
  21. BONALON [Concomitant]
     Active Substance: ALENDRONATE SODIUM
     Dosage: 35 MG MILLIGRAM(S), QW
     Route: 048
     Dates: start: 20130507
  22. ALBUMIN [Concomitant]
     Active Substance: ALBUMIN (HUMAN)
     Dosage: 2 DF DOSAGE FORM, DAILY DOSE
     Route: 042
     Dates: start: 20140225, end: 20140225

REACTIONS (1)
  - Pancytopenia [Recovered/Resolved]

NARRATIVE: CASE EVENT DATE: 20140226
